FAERS Safety Report 24040672 (Version 1)
Quarter: 2024Q3

REPORT INFORMATION
  Report Type: Spontaneous
  Country: US (occurrence: None)
  Receive Date: 20240701
  Receipt Date: 20240701
  Transmission Date: 20241016
  Serious: Yes (Hospitalization, Other)
  Sender: Public
  Company Number: None

PATIENT
  Age: 58 Year
  Sex: Female

DRUGS (1)
  1. KEYTRUDA [Suspect]
     Active Substance: PEMBROLIZUMAB
     Indication: Lung neoplasm malignant
     Dates: start: 20240101, end: 20240515

REACTIONS (12)
  - Chest pain [None]
  - Dyspnoea [None]
  - Dizziness [None]
  - Loss of consciousness [None]
  - Mental status changes [None]
  - Gait disturbance [None]
  - Eating disorder [None]
  - Cognitive disorder [None]
  - Encephalitis [None]
  - Conversion disorder [None]
  - Dysphagia [None]
  - Seizure [None]

NARRATIVE: CASE EVENT DATE: 20240522
